FAERS Safety Report 21762421 (Version 1)
Quarter: 2022Q4

REPORT INFORMATION
  Report Type: Spontaneous
  Country: US (occurrence: US)
  Receive Date: 20221221
  Receipt Date: 20221221
  Transmission Date: 20230113
  Serious: No
  Sender: FDA-Public Use
  Company Number: US-ABBVIE-4215616

PATIENT
  Sex: Male

DRUGS (5)
  1. MAVYRET [Suspect]
     Active Substance: GLECAPREVIR\PIBRENTASVIR
     Indication: Hepatitis C
     Route: 048
  2. MYCOPHENOLATE MOFETIL [Concomitant]
     Active Substance: MYCOPHENOLATE MOFETIL
     Indication: Hepatitis C
     Dosage: UNKNOWN
  3. MYCOPHENOLATE MOFETIL [Concomitant]
     Active Substance: MYCOPHENOLATE MOFETIL
     Indication: Hepatitis C
     Dosage: DOSE INCREASED
  4. TACROLIMUS [Concomitant]
     Active Substance: TACROLIMUS
     Indication: Hepatitis C
     Dosage: UNKNOWN
  5. TACROLIMUS [Concomitant]
     Active Substance: TACROLIMUS
     Indication: Hepatitis C
     Dosage: INCREASED

REACTIONS (4)
  - Fatigue [Unknown]
  - Headache [Unknown]
  - Nausea [Unknown]
  - Leukopenia [Unknown]
